FAERS Safety Report 7558157-X (Version None)
Quarter: 2011Q2

REPORT INFORMATION
  Report Type: 
  Country: None (occurrence: None)
  Receive Date: 20110620
  Receipt Date: 20110609
  Transmission Date: 20111010
  Serious: Yes (Disabling, Other)
  Sender: FDA-Public Use
  Company Number: US-ASTRAZENECA-2010SE37479

PATIENT
  Age: 47 Year
  Sex: Female

DRUGS (12)
  1. SEROQUEL [Suspect]
     Route: 048
  2. NEXIUM [Concomitant]
     Dosage: 40MG DAILY, PRN
     Route: 048
  3. ZOLOFT [Concomitant]
     Route: 048
  4. SYNTHROID [Concomitant]
     Route: 048
  5. SEROQUEL [Suspect]
     Route: 048
     Dates: start: 20100601
  6. SEROQUEL [Suspect]
     Route: 048
     Dates: start: 20100601
  7. SEROQUEL [Suspect]
     Indication: ANXIETY
     Route: 048
  8. SEROQUEL [Suspect]
     Route: 048
  9. KLONOPIN [Concomitant]
     Route: 048
  10. SEROQUEL [Suspect]
     Indication: DEPRESSION
     Route: 048
  11. SEROQUEL [Suspect]
     Route: 048
  12. SEROQUEL [Suspect]
     Route: 048

REACTIONS (16)
  - DEPRESSION [None]
  - INCORRECT DOSE ADMINISTERED [None]
  - NAUSEA [None]
  - PANIC ATTACK [None]
  - SUICIDAL IDEATION [None]
  - MENTAL DISABILITY [None]
  - DYSPEPSIA [None]
  - MENTAL DISORDER [None]
  - ABDOMINAL DISCOMFORT [None]
  - DECREASED APPETITE [None]
  - INSOMNIA [None]
  - MALAISE [None]
  - FEELING ABNORMAL [None]
  - ANXIETY [None]
  - WRONG TECHNIQUE IN DRUG USAGE PROCESS [None]
  - DRUG DOSE OMISSION [None]
